FAERS Safety Report 10677040 (Version 2)
Quarter: 2014Q4

REPORT INFORMATION
  Report Type: Spontaneous
  Country: AU (occurrence: AU)
  Receive Date: 20141226
  Receipt Date: 20141226
  Transmission Date: 20150529
  Serious: Yes (Death)
  Sender: FDA-Public Use
  Company Number: AU-SA-A01200801310

PATIENT
  Age: 30 Year
  Sex: Female

DRUGS (2)
  1. IMOVANE [Suspect]
     Active Substance: ZOPICLONE
     Indication: INSOMNIA
     Route: 048
     Dates: start: 200709
  2. STILNOX [Suspect]
     Active Substance: ZOLPIDEM TARTRATE
     Indication: INSOMNIA
     Route: 048
     Dates: start: 200701

REACTIONS (9)
  - Insomnia [Unknown]
  - Intentional product use issue [Unknown]
  - Fall [Fatal]
  - Weight decreased [Unknown]
  - Amnesia [Unknown]
  - Anxiety [Unknown]
  - Somnambulism [Fatal]
  - Visual acuity reduced [Fatal]
  - Confusional state [Unknown]

NARRATIVE: CASE EVENT DATE: 20070913
